FAERS Safety Report 7903399-4 (Version None)
Quarter: 2011Q4

REPORT INFORMATION
  Report Type: 
  Country: None (occurrence: None)
  Receive Date: 20111108
  Receipt Date: 20111108
  Transmission Date: 20120403
  Serious: No
  Sender: FDA-Public Use
  Company Number: None

PATIENT
  Sex: Female
  Weight: 73.4827 kg

DRUGS (2)
  1. LEVOTHYROXINE SODIUM [Suspect]
     Dates: start: 20100325
  2. LEVOTHYROXINE SODIUM [Suspect]
     Indication: HYPOTHYROIDISM
     Dosage: 1 TAB DAILY
     Dates: start: 20100124

REACTIONS (2)
  - BLOOD THYROID STIMULATING HORMONE ABNORMAL [None]
  - PALPITATIONS [None]
